FAERS Safety Report 10010073 (Version 2)
Quarter: 2014Q1

REPORT INFORMATION
  Report Type: Spontaneous
  Country: US (occurrence: US)
  Receive Date: 20140312
  Receipt Date: 20140312
  Transmission Date: 20141002
  Serious: No
  Sender: FDA-Public Use
  Company Number: US-INCYTE CORPORATION-2013IN000966

PATIENT
  Age: 66 Year
  Sex: Female
  Weight: 48.07 kg

DRUGS (9)
  1. JAKAFI [Suspect]
     Indication: MYELOFIBROSIS
     Dosage: 10 MG, QD 5 DAYS PER WEEK
     Route: 048
     Dates: start: 20130118
  2. ALLOPURINOL [Concomitant]
  3. AMITRIPTYLINE [Concomitant]
  4. SERTRALINE [Concomitant]
  5. FIORICET [Concomitant]
  6. LEVOTHYROXINE [Concomitant]
  7. IRON [Concomitant]
  8. LOSARTAN [Concomitant]
  9. COMPAZINE [Concomitant]

REACTIONS (4)
  - Oropharyngeal pain [Recovering/Resolving]
  - Nasopharyngitis [Recovering/Resolving]
  - White blood cell count abnormal [Recovering/Resolving]
  - Product label issue [Unknown]
